FAERS Safety Report 10650732 (Version 2)
Quarter: 2014Q4

REPORT INFORMATION
  Report Type: Spontaneous
  Country: US (occurrence: US)
  Receive Date: 20141215
  Receipt Date: 20141215
  Transmission Date: 20150529
  Serious: No
  Sender: FDA-Public Use
  Company Number: US-BAUSCH-SYM-2014-21240

PATIENT
  Sex: Male

DRUGS (3)
  1. XENAZINE [Suspect]
     Active Substance: TETRABENAZINE
     Dosage: 25MG ORALLY IN THE MORNINGS AND EVENING AND 12.5MG ORALLY AT NOON
     Route: 048
     Dates: start: 20140606
  2. XENAZINE [Suspect]
     Active Substance: TETRABENAZINE
     Indication: HUNTINGTON^S DISEASE
     Route: 048
     Dates: start: 20140416
  3. XENAZINE [Suspect]
     Active Substance: TETRABENAZINE
     Dosage: 25MG ORALLY IN THE MORNING AND 12.5MG ORALLY IN THE AFTERNOON AND EVENING
     Route: 048
     Dates: start: 20140530

REACTIONS (3)
  - Pollakiuria [Recovered/Resolved]
  - Sleep disorder [Recovered/Resolved]
  - Urinary hesitation [Recovered/Resolved]

NARRATIVE: CASE EVENT DATE: 2014
